FAERS Safety Report 17718054 (Version 1)
Quarter: 2020Q2

REPORT INFORMATION
  Report Type: Spontaneous
  Country: US (occurrence: US)
  Receive Date: 20200428
  Receipt Date: 20200428
  Transmission Date: 20200714
  Serious: Yes (Life-Threatening, Disabling, Other)
  Sender: FDA-Public Use
  Company Number: None

PATIENT
  Age: 35 Year
  Sex: Male
  Weight: 79.65 kg

DRUGS (3)
  1. MULTIVITAMINS [Concomitant]
     Active Substance: VITAMINS
  2. GABAPENTIN. [Concomitant]
     Active Substance: GABAPENTIN
  3. FINASTERIDE. [Suspect]
     Active Substance: FINASTERIDE
     Indication: ALOPECIA
     Dosage: ?          QUANTITY:30 TABLET(S);?
     Route: 048
     Dates: start: 20190617, end: 20190717

REACTIONS (17)
  - Scrotal disorder [None]
  - Testicular pain [None]
  - Amnesia [None]
  - Impaired quality of life [None]
  - Hot flush [None]
  - Ejaculation failure [None]
  - Vision blurred [None]
  - Anger [None]
  - Penis disorder [None]
  - Hyperaesthesia teeth [None]
  - Depression [None]
  - Weight decreased [None]
  - Cognitive disorder [None]
  - Anxiety [None]
  - Testicular disorder [None]
  - Suicidal ideation [None]
  - Homicidal ideation [None]

NARRATIVE: CASE EVENT DATE: 20190624
